FAERS Safety Report 8861298 (Version 3)
Quarter: 2014Q2

REPORT INFORMATION
  Report Type: Spontaneous
  Country: US (occurrence: US)
  Receive Date: 20121026
  Receipt Date: 20131024
  Transmission Date: 20141212
  Serious: Yes (Other)
  Sender: FDA-Public Use
  Company Number: US-PFIZER INC-2012262479

PATIENT
  Age: 59 Year
  Sex: Female
  Weight: 63.49 kg

DRUGS (1)
  1. PREMPRO [Suspect]
     Indication: OESTROGEN THERAPY
     Dosage: 0.625 MG, DAILY AT NIGHT
     Route: 048
     Dates: start: 2012

REACTIONS (4)
  - Vaginal haemorrhage [Not Recovered/Not Resolved]
  - Emotional disorder [Unknown]
  - Irritability [Unknown]
  - Mood altered [Unknown]
